FAERS Safety Report 20107515 (Version 1)
Quarter: 2021Q4

REPORT INFORMATION
  Report Type: Spontaneous
  Country: US (occurrence: None)
  Receive Date: 20211123
  Receipt Date: 20211123
  Transmission Date: 20220303
  Serious: Yes (Life-Threatening, Disabling, Other)
  Sender: FDA-Public Use
  Company Number: None

PATIENT
  Age: 59 Year
  Sex: Male
  Weight: 123.3 kg

DRUGS (1)
  1. REGEN-COV [Suspect]
     Active Substance: CASIRIVIMAB\IMDEVIMAB
     Dates: start: 20211115

REACTIONS (7)
  - Pyrexia [None]
  - Confusional state [None]
  - Fall [None]
  - Feeling abnormal [None]
  - Anal incontinence [None]
  - Feeling drunk [None]
  - Mental disorder [None]

NARRATIVE: CASE EVENT DATE: 20211115
